FAERS Safety Report 10137025 (Version 1)
Quarter: 2014Q2

REPORT INFORMATION
  Report Type: Spontaneous
  Country: US (occurrence: None)
  Receive Date: 20140425
  Receipt Date: 20140425
  Transmission Date: 20141212
  Serious: Yes (Other)
  Sender: FDA-Public Use
  Company Number: UCM201404-000060

PATIENT
  Age: 54 Year
  Sex: Male

DRUGS (6)
  1. AMLODIPINE BESYLATE [Suspect]
     Indication: HYPERTENSION
  2. CLONIDINE HCL [Suspect]
  3. LINAGLIPTIN [Suspect]
  4. LISINOPRIL [Suspect]
     Indication: HYPERTENSION
  5. HYDRALAZINE [Suspect]
     Indication: HYPERTENSION
  6. GLIMEPIRIDE [Suspect]
     Indication: TYPE 2 DIABETES MELLITUS

REACTIONS (3)
  - Renal failure acute [None]
  - Hypovolaemia [None]
  - Skin turgor decreased [None]
